FAERS Safety Report 5225720-0 (Version None)
Quarter: 2007Q1

REPORT INFORMATION
  Report Type: 
  Country: None (occurrence: None)
  Receive Date: 20070201
  Receipt Date: 20070124
  Transmission Date: 20070707
  Serious: Yes (Other)
  Sender: FDA-Public Use
  Company Number: US-SANOFI-SYNTHELABO-A03200700640

PATIENT
  Age: 16 Year
  Sex: Female

DRUGS (2)
  1. LEXAPRO [Concomitant]
     Dosage: UNK
     Route: 048
  2. AMBIEN [Suspect]
     Indication: INSOMNIA
     Route: 048
     Dates: start: 20070122, end: 20070124

REACTIONS (7)
  - HEADACHE [None]
  - HYPOAESTHESIA [None]
  - RASH [None]
  - THROAT TIGHTNESS [None]
  - TREMOR [None]
  - VERTIGO [None]
  - VOMITING [None]
